FAERS Safety Report 16995088 (Version 1)
Quarter: 2019Q4

REPORT INFORMATION
  Report Type: Report from Study
  Country: DE (occurrence: DE)
  Receive Date: 20191105
  Receipt Date: 20191105
  Transmission Date: 20200122
  Serious: Yes (Death, Hospitalization)
  Sender: FDA-Public Use
  Company Number: DE-TAKEDA-2019TUS062271

PATIENT
  Age: 8 Decade
  Sex: Male

DRUGS (24)
  1. DEXAMETHASONE. [Suspect]
     Active Substance: DEXAMETHASONE
     Indication: PLASMA CELL MYELOMA
     Dosage: 20 MILLIGRAM
     Route: 065
     Dates: start: 20190426, end: 20190705
  2. CANDESARTAN. [Concomitant]
     Active Substance: CANDESARTAN
     Route: 048
  3. DUROGESIC SMAT [Concomitant]
     Active Substance: FENTANYL
     Route: 062
     Dates: start: 20190518, end: 20190606
  4. FILGRASTIM [Concomitant]
     Active Substance: FILGRASTIM
     Dosage: 4800 INTERNATIONAL UNIT
     Route: 058
     Dates: start: 20190527
  5. BORTEZOMIB. [Suspect]
     Active Substance: BORTEZOMIB
     Indication: PLASMA CELL MYELOMA
     Dosage: 2.5 MILLIGRAM
     Route: 065
     Dates: start: 20190426, end: 20190705
  6. TILIDIN [Concomitant]
     Active Substance: NALOXONE HYDROCHLORIDE\TILIDINE HYDROCHLORIDE
     Dosage: 54 MILLIGRAM
     Route: 048
     Dates: start: 20190506, end: 20190509
  7. DUROGESIC SMAT [Concomitant]
     Active Substance: FENTANYL
     Route: 062
     Dates: start: 20190712
  8. LAXOBERAL [Concomitant]
     Active Substance: SODIUM PICOSULFATE
     Route: 048
     Dates: start: 20190517
  9. DAXAS [Concomitant]
     Active Substance: ROFLUMILAST
     Dosage: 500 MILLIGRAM
     Route: 048
  10. PANTOPRAZOLE [Concomitant]
     Active Substance: PANTOPRAZOLE
     Dosage: 40 MILLIGRAM
     Route: 048
  11. CODEINTROPFEN [Concomitant]
     Route: 048
     Dates: start: 20190506
  12. CYCLOPHOSPHAMIDE. [Suspect]
     Active Substance: CYCLOPHOSPHAMIDE
     Indication: PLASMA CELL MYELOMA
     Dosage: 880 MILLIGRAM
     Route: 065
     Dates: start: 20190426, end: 20190625
  13. PREDNISOLONE. [Concomitant]
     Active Substance: PREDNISOLONE
     Dosage: 5 MILLIGRAM
     Route: 048
  14. VENTOLAIR [Concomitant]
     Active Substance: BECLOMETHASONE DIPROPIONATE
     Dosage: 250 MICROGRAM
  15. GRANISETRON [Concomitant]
     Active Substance: GRANISETRON
     Dosage: 2 MILLIGRAM
     Route: 048
     Dates: start: 20190416
  16. ATORVASTATIN [Concomitant]
     Active Substance: ATORVASTATIN
     Dosage: 20 MILLIGRAM
     Route: 048
     Dates: start: 20190506
  17. NOVAMINSULFON [Concomitant]
     Active Substance: METAMIZOLE
     Dosage: 500 MILLIGRAM
     Route: 048
     Dates: start: 20190506, end: 20190516
  18. FENTANYL. [Concomitant]
     Active Substance: FENTANYL
     Dosage: 32 MICROGRAM
     Route: 045
     Dates: start: 20190509
  19. ADENURIC [Concomitant]
     Active Substance: FEBUXOSTAT
     Dosage: 80 MILLIGRAM
     Route: 048
  20. NOVAMINSULFON [Concomitant]
     Active Substance: METAMIZOLE
     Dosage: 1 GRAM
     Route: 048
     Dates: start: 20190517
  21. DUROGESIC SMAT [Concomitant]
     Active Substance: FENTANYL
     Route: 062
     Dates: start: 20190509, end: 20190517
  22. DUROGESIC SMAT [Concomitant]
     Active Substance: FENTANYL
     Route: 062
     Dates: start: 20190607, end: 20190711
  23. EPOETIN ALFA [Concomitant]
     Active Substance: ERYTHROPOIETIN
     Dosage: 3000 INTERNATIONAL UNIT
     Route: 058
     Dates: start: 20190604
  24. ETORICOXIB. [Concomitant]
     Active Substance: ETORICOXIB
     Route: 048
     Dates: start: 20190607

REACTIONS (3)
  - Vomiting [Recovered/Resolved]
  - Pain [Not Recovered/Not Resolved]
  - Death [Fatal]

NARRATIVE: CASE EVENT DATE: 20190628
